FAERS Safety Report 12771135 (Version 1)
Quarter: 2016Q3

REPORT INFORMATION
  Report Type: Spontaneous
  Country: US (occurrence: US)
  Receive Date: 20160919
  Receipt Date: 20160919
  Transmission Date: 20161109
  Serious: No
  Sender: FDA-Public Use
  Company Number: None

PATIENT
  Sex: Male
  Weight: 72.58 kg

DRUGS (3)
  1. CAPECITABINE 3,000MG MYLAN [Suspect]
     Active Substance: CAPECITABINE
     Indication: COLON CANCER
     Route: 048
     Dates: start: 20160824
  2. GLIMEPIRIDE. [Concomitant]
     Active Substance: GLIMEPIRIDE
  3. TRADJENTA [Concomitant]
     Active Substance: LINAGLIPTIN

REACTIONS (2)
  - Cough [None]
  - Haemoglobin decreased [None]
